FAERS Safety Report 5737518-5 (Version None)
Quarter: 2008Q2

REPORT INFORMATION
  Report Type: 
  Country: None (occurrence: None)
  Receive Date: 20080514
  Receipt Date: 20080508
  Transmission Date: 20081010
  Serious: Yes (Other)
  Sender: FDA-Public Use
  Company Number: JP-ASTRAZENECA-2008AP00959

PATIENT
  Age: 25461 Day
  Sex: Male
  Weight: 51 kg

DRUGS (3)
  1. CRESTOR [Suspect]
     Indication: HYPERCHOLESTEROLAEMIA
     Route: 048
     Dates: start: 20060706
  2. OLMETEC [Suspect]
     Dosage: FREQUENCY UNKNOWN
     Route: 048
     Dates: start: 20060726
  3. BLOPRESS [Concomitant]
     Indication: HYPERTENSION
     Dosage: FREQUENCY UNKNOWN
     Route: 048
     Dates: start: 20020828, end: 20060726

REACTIONS (3)
  - ANTI-INSULIN RECEPTOR ANTIBODY POSITIVE [None]
  - BLOOD CREATININE INCREASED [None]
  - DIABETIC NEPHROPATHY [None]
